FAERS Safety Report 9594626 (Version 1)
Quarter: 2013Q4

REPORT INFORMATION
  Report Type: Spontaneous
  Country: GR (occurrence: GR)
  Receive Date: 20131004
  Receipt Date: 20131004
  Transmission Date: 20140711
  Serious: Yes (Other)
  Sender: FDA-Public Use
  Company Number: GR-ROXANE LABORATORIES, INC.-2013-RO-01616RO

PATIENT
  Age: 22 Year
  Sex: Male

DRUGS (7)
  1. CYCLOPHOSPHAMIDE TABLETS USP [Suspect]
     Indication: LUPUS NEPHRITIS
     Dates: start: 200811, end: 200902
  2. CYCLOPHOSPHAMIDE TABLETS USP [Suspect]
     Indication: TESTICULAR GERM CELL CANCER
     Dates: start: 201001
  3. CELLCEPT [Suspect]
     Indication: LUPUS NEPHRITIS
     Dosage: 2 G
     Route: 048
  4. CARBOPLATIN [Suspect]
     Indication: TESTICULAR GERM CELL CANCER
  5. ETOPOSIDE [Suspect]
     Indication: TESTICULAR GERM CELL CANCER
  6. GRANULOCYTE COLONY-STIMULATING FACTOR NOS [Suspect]
     Indication: TESTICULAR GERM CELL CANCER
  7. PALIFERMIN [Suspect]
     Indication: PROPHYLAXIS
     Route: 042

REACTIONS (5)
  - Testicular germ cell cancer [Recovered/Resolved]
  - Neutropenia [Recovered/Resolved]
  - Thrombocytopenia [Recovered/Resolved]
  - Mucosal inflammation [Unknown]
  - Cystitis haemorrhagic [Unknown]
